FAERS Safety Report 22376937 (Version 1)
Quarter: 2023Q2

REPORT INFORMATION
  Report Type: Other
  Country: US (occurrence: None)
  Receive Date: 20230529
  Receipt Date: 20230529
  Transmission Date: 20230722
  Serious: Yes (Death, Hospitalization, Other)
  Sender: FDA-Public Use
  Company Number: US-Saptalis Pharmaceuticals,LLC-000358

PATIENT
  Age: 53 Year
  Sex: Male

DRUGS (6)
  1. METFORMIN [Suspect]
     Active Substance: METFORMIN HYDROCHLORIDE
     Indication: Type 2 diabetes mellitus
     Dosage: APPROXIMATELY 80 GRAMS OF 1000 MG METFORMIN TABLETS ONE HOUR PRIOR TO ARRIVAL.
     Route: 048
  2. LISINOPRIL [Concomitant]
     Active Substance: LISINOPRIL
     Indication: Product used for unknown indication
  3. GABAPENTIN [Concomitant]
     Active Substance: GABAPENTIN
     Indication: Product used for unknown indication
  4. BACLOFEN [Concomitant]
     Active Substance: BACLOFEN
     Indication: Product used for unknown indication
  5. BENZTROPINE [Concomitant]
     Active Substance: BENZTROPINE
     Indication: Product used for unknown indication
  6. ESCITALOPRAM [Concomitant]
     Active Substance: ESCITALOPRAM OXALATE
     Indication: Product used for unknown indication

REACTIONS (10)
  - Intentional overdose [Fatal]
  - Toxicity to various agents [Fatal]
  - Vomiting [Unknown]
  - Anal incontinence [Unknown]
  - Depression [Unknown]
  - Shock [Unknown]
  - Lactic acidosis [Fatal]
  - Condition aggravated [Fatal]
  - Brain oedema [Unknown]
  - Brain injury [Unknown]
